FAERS Safety Report 8810976 (Version 2)
Quarter: 2012Q4

REPORT INFORMATION
  Report Type: 
  Country: US (occurrence: US)
  Receive Date: 20120927
  Receipt Date: 20121015
  Transmission Date: 20130627
  Serious: Yes (Hospitalization)
  Sender: FDA-Public Use
  Company Number: US-SANOFI-AVENTIS-2012SA069060

PATIENT
  Age: 82 Year
  Sex: Male
  Weight: 97.98 kg

DRUGS (6)
  1. LANTUS SOLOSTAR [Suspect]
     Indication: TYPE 2 DIABETES MELLITUS
     Dosage: Dose:48 unit(s)
     Route: 058
     Dates: start: 20120520
  2. LANTUS SOLOSTAR [Suspect]
     Indication: TYPE 2 DIABETES MELLITUS
     Dosage: Dose:20 unit(s)
     Route: 058
     Dates: start: 2012
  3. SOLOSTAR [Suspect]
     Indication: TYPE 2 DIABETES MELLITUS
     Dates: start: 20120520
  4. IRON [Concomitant]
     Indication: IRON DEFICIENCY
     Dosage: one daily.
     Dates: start: 20120520
  5. TYLENOL [Concomitant]
     Indication: PAIN
  6. ULTRAM [Concomitant]
     Indication: PAIN
     Dates: start: 201206

REACTIONS (2)
  - Myocardial infarction [Recovering/Resolving]
  - Blood glucose decreased [Unknown]
